FAERS Safety Report 9439150 (Version 1)
Quarter: 2013Q3

REPORT INFORMATION
  Report Type: Spontaneous
  Country: FR (occurrence: FR)
  Receive Date: 20130802
  Receipt Date: 20130802
  Transmission Date: 20140515
  Serious: Yes (Hospitalization)
  Sender: FDA-Public Use
  Company Number: FR-ASTRAZENECA-2013SE57069

PATIENT
  Age: 9927 Day
  Sex: Male

DRUGS (5)
  1. DIPRIVAN [Suspect]
     Indication: SEDATION
     Route: 042
     Dates: start: 20130706, end: 20130707
  2. HYPNOVEL [Concomitant]
     Route: 042
     Dates: start: 20130705
  3. NORADRENALINE [Concomitant]
     Route: 042
     Dates: start: 20130705
  4. PERFALGAN [Concomitant]
     Route: 042
     Dates: start: 20130705
  5. SUFENTANIL [Concomitant]
     Route: 042
     Dates: start: 20130705

REACTIONS (4)
  - Propofol infusion syndrome [Recovering/Resolving]
  - Acidosis [Recovering/Resolving]
  - Blood creatine phosphokinase increased [Recovering/Resolving]
  - Chromaturia [Recovering/Resolving]
